FAERS Safety Report 25931453 (Version 1)
Quarter: 2025Q4

REPORT INFORMATION
  Report Type: Spontaneous
  Country: US (occurrence: None)
  Receive Date: 20251016
  Receipt Date: 20251016
  Transmission Date: 20260118
  Serious: No
  Sender: FDA-CTU
  Company Number: None

PATIENT

DRUGS (1)
  1. SOFDRA [Suspect]
     Active Substance: SOFPIRONIUM BROMIDE

REACTIONS (9)
  - Dry mouth [None]
  - Vision blurred [None]
  - Application site pain [None]
  - Application site erythema [None]
  - Application site swelling [None]
  - Application site irritation [None]
  - Application site pruritus [None]
  - Urinary retention [None]
  - Body temperature decreased [None]

NARRATIVE: CASE EVENT DATE: 20251014
